FAERS Safety Report 15856337 (Version 1)
Quarter: 2019Q1

REPORT INFORMATION
  Report Type: Spontaneous
  Country: CO (occurrence: CO)
  Receive Date: 20190123
  Receipt Date: 20190123
  Transmission Date: 20190417
  Serious: Yes (Life-Threatening, Hospitalization, Other)
  Sender: FDA-Public Use
  Company Number: CO-LUPIN PHARMACEUTICALS INC.-2018-09281

PATIENT
  Age: 82 Year
  Sex: Female

DRUGS (5)
  1. LOSARTAN. [Concomitant]
     Active Substance: LOSARTAN
     Indication: HYPERTENSION
     Dosage: 50 MG, BID, 1-0-1
     Route: 065
  2. WARFARIN [Interacting]
     Active Substance: WARFARIN
     Indication: DEEP VEIN THROMBOSIS
     Dosage: 5 MG, QD, 1-0-0
     Route: 065
  3. HYDROCHLOROTHIAZIDE. [Concomitant]
     Active Substance: HYDROCHLOROTHIAZIDE
     Indication: HYPERTENSION
     Dosage: 25 MG, QD, 1-0-0
     Route: 065
  4. AMLODIPINE [Concomitant]
     Active Substance: AMLODIPINE BESYLATE
     Indication: HYPERTENSION
     Dosage: 5 MG, QD, 0-0-1
     Route: 065
  5. OMEPRAZOLE. [Suspect]
     Active Substance: OMEPRAZOLE
     Indication: GASTROOESOPHAGEAL REFLUX DISEASE
     Dosage: 20 MG, QD, 1-0-0
     Route: 065

REACTIONS (8)
  - Haematoma [Unknown]
  - Inflammation [Unknown]
  - Incorrect dose administered [Unknown]
  - Skin discolouration [Unknown]
  - Haemorrhage [Unknown]
  - Coagulopathy [Unknown]
  - Drug interaction [Unknown]
  - Pain in extremity [Unknown]
